FAERS Safety Report 16446883 (Version 5)
Quarter: 2020Q3

REPORT INFORMATION
  Report Type: Spontaneous
  Country: JP (occurrence: JP)
  Receive Date: 20190618
  Receipt Date: 20200817
  Transmission Date: 20201102
  Serious: Yes (Hospitalization, Other)
  Sender: FDA-Public Use
  Company Number: JP-PFIZER INC-2019246500

PATIENT
  Sex: Female

DRUGS (5)
  1. MEDROL [Suspect]
     Active Substance: METHYLPREDNISOLONE
     Dosage: 20 MG
     Route: 048
     Dates: start: 2019, end: 2019
  2. MEDROL [Suspect]
     Active Substance: METHYLPREDNISOLONE
     Dosage: 4 MG, 1X/DAY
     Route: 048
     Dates: start: 20190705
  3. GRACEPTOR [Suspect]
     Active Substance: TACROLIMUS
     Dosage: UNK
     Route: 048
  4. CELLCEPT [Suspect]
     Active Substance: MYCOPHENOLATE MOFETIL\MYCOPHENOLATE MOFETIL HYDROCHLORIDE
     Dosage: UNK
     Route: 048
  5. MEDROL [Suspect]
     Active Substance: METHYLPREDNISOLONE
     Dosage: 8 MG
     Route: 048
     Dates: start: 2019, end: 20190704

REACTIONS (24)
  - Abdominal discomfort [Unknown]
  - Discomfort [Unknown]
  - Micturition urgency [Unknown]
  - Blood glucose increased [Unknown]
  - Cytomegalovirus infection [Unknown]
  - Abdominal distension [Unknown]
  - Chest discomfort [Unknown]
  - Gastric disorder [Unknown]
  - Dyschezia [Unknown]
  - Restlessness [Unknown]
  - Cataract [Unknown]
  - Pollakiuria [Unknown]
  - Alopecia [Unknown]
  - Initial insomnia [Unknown]
  - Photophobia [Unknown]
  - Gastritis erosive [Unknown]
  - Feeling abnormal [Unknown]
  - Vision blurred [Unknown]
  - Abdominal pain upper [Unknown]
  - Depressive symptom [Unknown]
  - Body temperature decreased [Unknown]
  - Blood creatinine increased [Recovered/Resolved]
  - Anxiety [Unknown]
  - Tremor [Unknown]

NARRATIVE: CASE EVENT DATE: 2019
